FAERS Safety Report 15100334 (Version 1)
Quarter: 2018Q3

REPORT INFORMATION
  Report Type: Spontaneous
  Country: US (occurrence: US)
  Receive Date: 20180703
  Receipt Date: 20180703
  Transmission Date: 20181010
  Serious: No
  Sender: FDA-Public Use
  Company Number: US-ADAAP-201800115

PATIENT
  Age: 71 Year
  Sex: Female
  Weight: 100.2 kg

DRUGS (1)
  1. LUTATHERA [Suspect]
     Active Substance: LUTETIUM OXODOTREOTIDE LU-177
     Indication: NEOPLASM MALIGNANT
     Route: 041
     Dates: start: 20180606, end: 20180606

REACTIONS (2)
  - Nausea [Recovered/Resolved]
  - Peripheral swelling [Recovered/Resolved]

NARRATIVE: CASE EVENT DATE: 20180606
